FAERS Safety Report 23860292 (Version 1)
Quarter: 2024Q2

REPORT INFORMATION
  Report Type: Report from Study
  Country: IN (occurrence: IN)
  Receive Date: 20240515
  Receipt Date: 20240515
  Transmission Date: 20240715
  Serious: Yes (Death, Life-Threatening, Hospitalization, Disabling)
  Sender: FDA-Public Use
  Company Number: IN-BAYER-2022P014796

PATIENT
  Age: 54 Year
  Sex: Female
  Weight: 69 kg

DRUGS (53)
  1. XARELTO [Suspect]
     Active Substance: RIVAROXABAN
     Indication: Peripheral arterial occlusive disease
     Dosage: 2.5 MG, BID
     Route: 048
     Dates: start: 20220721, end: 20220914
  2. XARELTO [Suspect]
     Active Substance: RIVAROXABAN
     Indication: Coronary artery disease
     Dosage: 2.5 MG, BID
     Route: 048
     Dates: start: 20220918, end: 20221011
  3. ASPIRIN [Suspect]
     Active Substance: ASPIRIN
     Indication: Peripheral arterial occlusive disease
     Dosage: 75 MG, QD
     Route: 048
     Dates: start: 20220721, end: 20220914
  4. ASPIRIN [Suspect]
     Active Substance: ASPIRIN
     Indication: Coronary artery disease
     Dosage: 325 MG, QD
     Route: 048
     Dates: start: 20220915, end: 20220917
  5. ASPIRIN [Suspect]
     Active Substance: ASPIRIN
     Indication: Peripheral arterial occlusive disease
     Dosage: 150 MG, QD
     Route: 048
     Dates: start: 20220918, end: 20220923
  6. ASPIRIN [Suspect]
     Active Substance: ASPIRIN
     Indication: Peripheral arterial occlusive disease
     Dosage: 75 MG, QD
     Route: 048
     Dates: start: 20220924, end: 20221014
  7. ASPIRIN [Suspect]
     Active Substance: ASPIRIN
     Indication: Peripheral arterial occlusive disease
     Dosage: 75 MG, QD
     Route: 048
     Dates: start: 20221015, end: 20221024
  8. ASPIRIN [Suspect]
     Active Substance: ASPIRIN
     Indication: Peripheral arterial occlusive disease
     Dosage: 75 MG, QD
     Route: 048
     Dates: start: 20220714, end: 20220720
  9. SITAGLIPTIN [Concomitant]
     Active Substance: SITAGLIPTIN
     Indication: Hyperglycaemia
     Dosage: 0.05 MG, BID
     Route: 048
     Dates: start: 20220721, end: 20220914
  10. ROSUVASTATIN [Concomitant]
     Active Substance: ROSUVASTATIN
     Indication: Hyperlipidaemia
     Dosage: 20 MG, QD
     Route: 048
     Dates: start: 20220714, end: 20220914
  11. ROSUVASTATIN [Concomitant]
     Active Substance: ROSUVASTATIN
     Indication: Dyslipidaemia
     Dosage: 20 MG, QD
     Route: 048
     Dates: start: 20220919, end: 20221024
  12. PENTOXIFYLLINE [Concomitant]
     Active Substance: PENTOXIFYLLINE
     Indication: Intermittent claudication
     Dosage: 400 MG, TID
     Route: 048
     Dates: start: 20220714, end: 20220721
  13. PENTOXIFYLLINE [Concomitant]
     Active Substance: PENTOXIFYLLINE
     Indication: Intermittent claudication
     Dosage: 400 MG, TID
     Route: 048
     Dates: start: 20220721, end: 20220914
  14. PENTOXIFYLLINE [Concomitant]
     Active Substance: PENTOXIFYLLINE
     Indication: Intermittent claudication
     Dosage: 400 MG, QD
     Route: 048
     Dates: start: 20220918, end: 20221024
  15. ACETAMINOPHEN [Concomitant]
     Active Substance: ACETAMINOPHEN
     Indication: Pain
     Dosage: 650 MG, TID
     Route: 048
     Dates: start: 20220721, end: 20220725
  16. ACETAMINOPHEN [Concomitant]
     Active Substance: ACETAMINOPHEN
     Indication: Pain
     Dosage: 650 MG, TID
     Route: 048
     Dates: start: 20220730, end: 20220914
  17. LOSARTAN [Concomitant]
     Active Substance: LOSARTAN
     Indication: Hypertension
     Dosage: 25 MG, QD
     Route: 048
     Dates: start: 20220718, end: 20220914
  18. LOSARTAN [Concomitant]
     Active Substance: LOSARTAN
     Indication: Hypertension
     Dosage: UNK
     Dates: start: 20220919, end: 20221024
  19. PANTOPRAZOLE [Concomitant]
     Active Substance: PANTOPRAZOLE
     Indication: Dyspepsia
     Dosage: 40 MG, QD
     Route: 048
     Dates: start: 20220730, end: 20220914
  20. PANTOPRAZOLE [Concomitant]
     Active Substance: PANTOPRAZOLE
     Indication: Dyspepsia
     Dosage: 40 MG, QD
     Route: 042
     Dates: start: 20220915, end: 20220918
  21. PANTOPRAZOLE [Concomitant]
     Active Substance: PANTOPRAZOLE
     Indication: Dyspepsia
     Dosage: 40 MG, QD
     Route: 042
     Dates: start: 20221022, end: 20221024
  22. ATORVASTATIN [Concomitant]
     Active Substance: ATORVASTATIN
     Dosage: 80 MG, QD
     Route: 048
     Dates: start: 20220915
  23. VITAMIN B COMPLEX [Concomitant]
     Active Substance: CYANOCOBALAMIN\DEXPANTHENOL\NIACINAMIDE\PYRIDOXINE HYDROCHLORIDE\RIBOFLAVIN 5^-PHOSPHATE SODIUM\THIA
     Dosage: 1 DF, QD
     Route: 042
     Dates: start: 20220915, end: 20220918
  24. TRAMADOL HYDROCHLORIDE [Concomitant]
     Active Substance: TRAMADOL HYDROCHLORIDE
     Dosage: 37.5 MG, TID
     Route: 048
     Dates: start: 20220714, end: 20220721
  25. ACETAMINOPHEN [Concomitant]
     Active Substance: ACETAMINOPHEN
     Dosage: 325 MG, TID
     Route: 048
     Dates: start: 20220714, end: 20220721
  26. METFORMIN\SITAGLIPTIN [Concomitant]
     Active Substance: METFORMIN\SITAGLIPTIN
     Dosage: UNK UNK, QD
     Route: 048
     Dates: start: 20220721, end: 20220914
  27. METFORMIN\SITAGLIPTIN [Concomitant]
     Active Substance: METFORMIN\SITAGLIPTIN
     Dosage: UNK, QD
     Route: 048
     Dates: start: 20220919, end: 20221024
  28. CEFOPERAZONE SODIUM\SULBACTAM SODIUM [Concomitant]
     Active Substance: CEFOPERAZONE SODIUM\SULBACTAM SODIUM
     Dosage: 1.5 G, BID
     Route: 042
     Dates: start: 20220721, end: 20220723
  29. CEFOPERAZONE SODIUM\SULBACTAM SODIUM [Concomitant]
     Active Substance: CEFOPERAZONE SODIUM\SULBACTAM SODIUM
     Dosage: 1.2 G, QD
     Route: 042
     Dates: start: 20221014, end: 20221014
  30. CLINDAMYCIN HYDROCHLORIDE [Concomitant]
     Active Substance: CLINDAMYCIN HYDROCHLORIDE
     Dosage: 300 MG, TID
     Route: 048
     Dates: start: 20220721, end: 20220725
  31. ACETYLCYSTEINE [Concomitant]
     Active Substance: ACETYLCYSTEINE
     Dosage: 600 MG, BID
     Route: 048
     Dates: start: 20220718, end: 20220723
  32. ACETYLCYSTEINE [Concomitant]
     Active Substance: ACETYLCYSTEINE
     Dosage: 600 MG, BID
     Route: 048
     Dates: start: 20221013, end: 20221024
  33. DAPAGLIFLOZIN PROPANEDIOL\METFORMIN HYDROCHLORIDE [Concomitant]
     Active Substance: DAPAGLIFLOZIN PROPANEDIOL\METFORMIN HYDROCHLORIDE
     Dosage: UNK UNK, QD
     Dates: start: 20220721, end: 20220914
  34. DAPAGLIFLOZIN PROPANEDIOL\METFORMIN HYDROCHLORIDE [Concomitant]
     Active Substance: DAPAGLIFLOZIN PROPANEDIOL\METFORMIN HYDROCHLORIDE
     Dosage: UNK, QD
     Dates: start: 20220721, end: 20220914
  35. DOMPERIDONE [Concomitant]
     Active Substance: DOMPERIDONE
     Dosage: 30 MG, QD
     Route: 048
     Dates: start: 20220831, end: 20220914
  36. CLOPIDOGREL BISULFATE [Concomitant]
     Active Substance: CLOPIDOGREL BISULFATE
     Dosage: 75 MG, QD
     Route: 048
     Dates: start: 20221011, end: 20221024
  37. CLAVULANATE POTASSIUM [Concomitant]
     Active Substance: CLAVULANATE POTASSIUM
     Dosage: 625 MG, BID
     Route: 048
     Dates: start: 20221006, end: 20221010
  38. CLAVULANATE POTASSIUM [Concomitant]
     Active Substance: CLAVULANATE POTASSIUM
     Dosage: 625 MG, BID
     Route: 048
     Dates: start: 20221015, end: 20221020
  39. SACCHAROMYCES CEREVISIAE [Concomitant]
     Active Substance: SACCHAROMYCES CEREVISIAE
     Dosage: 765 MG, BID
     Route: 048
     Dates: start: 20221015, end: 20221024
  40. GABAPENTIN [Concomitant]
     Active Substance: GABAPENTIN
     Dosage: 100 MG, TID
     Route: 048
     Dates: start: 20221006, end: 20221024
  41. ENOXAPARIN [Concomitant]
     Active Substance: ENOXAPARIN
     Dosage: 60 MG, QD
     Dates: start: 20221014, end: 20221014
  42. CIPROFLOXACIN [Concomitant]
     Active Substance: CIPROFLOXACIN
     Dosage: 500 MG, BID
     Route: 048
     Dates: start: 20221011, end: 20221014
  43. ONDANSETRON [Concomitant]
     Active Substance: ONDANSETRON
     Dosage: 4 MG, TID
     Route: 048
     Dates: start: 20221006, end: 20221009
  44. ONDANSETRON [Concomitant]
     Active Substance: ONDANSETRON
     Dosage: QD
     Route: 042
     Dates: start: 20221014, end: 20221014
  45. CEFTRIAXONE [Concomitant]
     Active Substance: CEFTRIAXONE\CEFTRIAXONE SODIUM
     Dosage: 0.5 G, QD
     Route: 042
     Dates: start: 20221014, end: 20221014
  46. CEFTRIAXONE [Concomitant]
     Active Substance: CEFTRIAXONE\CEFTRIAXONE SODIUM
     Dosage: 2 G, QD
     Route: 042
     Dates: start: 20221014, end: 20221014
  47. APO AMOXYCILLIN AND CLAVULANIC ACID [Concomitant]
     Dosage: 625 MG, BID
     Route: 048
     Dates: start: 20221015, end: 20221020
  48. HANLIM MEROPENAM [Concomitant]
     Dosage: 1 G, TID
     Route: 042
     Dates: start: 20221022, end: 20221024
  49. OPTINEURON [CALCIUM PANTOTHENATE;CYANOCOBALAMIN;NICOTINAMIDE;PYRIDOXIN [Concomitant]
     Dosage: UNK UNK, QD
     Route: 042
     Dates: start: 20221022, end: 20221024
  50. CALCIUM GLUCONATE [Concomitant]
     Active Substance: CALCIUM GLUCONATE
     Dosage: 10 ML, QD
     Route: 042
     Dates: start: 20221022, end: 20221023
  51. ALBUMIN HUMAN [Concomitant]
     Active Substance: ALBUMIN HUMAN
     Dosage: 20 %
     Route: 042
     Dates: start: 20221023, end: 20221023
  52. LACTULOSE [Concomitant]
     Active Substance: LACTULOSE
     Dosage: UNK UNK, QD
     Route: 048
     Dates: start: 20221024, end: 20221024
  53. TIGECYCLINE [Concomitant]
     Active Substance: TIGECYCLINE
     Dosage: 200 MG, QD
     Route: 042
     Dates: start: 20221024, end: 20221024

REACTIONS (5)
  - Shock [Fatal]
  - Septic shock [Fatal]
  - Cardiogenic shock [Fatal]
  - Ischaemic stroke [Recovered/Resolved]
  - Peripheral arterial occlusive disease [Recovered/Resolved]

NARRATIVE: CASE EVENT DATE: 20220914
